FAERS Safety Report 24936646 (Version 2)
Quarter: 2025Q1

REPORT INFORMATION
  Report Type: Report from Study
  Country: US (occurrence: US)
  Receive Date: 20250206
  Receipt Date: 20250216
  Transmission Date: 20250408
  Serious: Yes (Hospitalization)
  Sender: TAKEDA
  Company Number: US-TAKEDA-2025TUS012490

PATIENT
  Sex: Male

DRUGS (4)
  1. MARIBAVIR [Suspect]
     Active Substance: MARIBAVIR
     Indication: Renal transplant
     Dosage: 400 MILLIGRAM, BID
     Dates: start: 20250115
  2. MARIBAVIR [Suspect]
     Active Substance: MARIBAVIR
     Indication: Cytomegalovirus infection
  3. MARIBAVIR [Suspect]
     Active Substance: MARIBAVIR
     Indication: Leukopenia
  4. ERTAPENEM [Suspect]
     Active Substance: ERTAPENEM
     Indication: Urinary tract infection

REACTIONS (7)
  - Urinary tract infection [Unknown]
  - Rash papular [Unknown]
  - Myalgia [Unknown]
  - Wheezing [Unknown]
  - Nasopharyngitis [Unknown]
  - Faeces discoloured [Recovered/Resolved]
  - Fatigue [Unknown]
